FAERS Safety Report 17233392 (Version 1)
Quarter: 2020Q1

REPORT INFORMATION
  Report Type: Spontaneous
  Country: DE (occurrence: DE)
  Receive Date: 20200104
  Receipt Date: 20200104
  Transmission Date: 20200409
  Serious: Yes (Hospitalization)
  Sender: FDA-Public Use
  Company Number: DE-TEVA-2019-DE-1161133

PATIENT
  Age: 72 Year
  Sex: Female

DRUGS (20)
  1. ALLOPURINOL ABZ 300MG [Concomitant]
     Dosage: 300 MG, 0.5-0-0-0, TABLETS
  2. EKLIRA GENUAIR 322MIKROGRAMM [Concomitant]
     Active Substance: ACLIDINIUM BROMIDE
     Dosage: 322 MICROGRAM, 1-0-0-0, INHALATION POWDER
  3. MOXONIDINE [Concomitant]
     Active Substance: MOXONIDINE
     Dosage: 0.2 MG, 1-0-1-0
  4. CELESTAMINE [Concomitant]
     Active Substance: BETAMETHASONE\DEXCHLORPHENIRAMINE MALEATE
     Dosage: NEED IN AN ALLERGIC EMERGENCY
  5. RAMIPRIL-ISIS 5MG [Concomitant]
     Dosage: 5 MG, 1-0-1-0, TABLETS
  6. NOVAMINSULFON [Concomitant]
     Active Substance: METAMIZOLE
     Dosage: 30-30-30-30
  7. SULTANOL DOSIER-AERSOL [Concomitant]
     Dosage: 0.1 MG, IF NECESSARY, SPRAY
  8. ZYRTEC TROPFEN [Concomitant]
     Dosage: 10 MG / ML, NEED, DROPS
  9. FORMOTOP 6MIKROGRAMM [Concomitant]
     Dosage: 6 MICROGRAM 2-0-2-0, INHALATION POWDER
  10. PREDNISOLONE. [Suspect]
     Active Substance: PREDNISOLONE
     Dosage: 5 MG, 1-0-0-0, TABLETS
  11. PHENPROGAMMA 3 [Suspect]
     Active Substance: PHENPROCOUMON
     Dosage: 3 MG, ACCORDING TO PLAN, TABLETS
  12. TORASEMID ABZ 10MG [Concomitant]
     Dosage: 10 MG, 1-1-0-0, TABLETS
  13. BUDES N 0,2 MG/DOSIS [Concomitant]
     Dosage: 0.2 MG, 2-0-2-0, SPRAY
  14. PREGABALIN ABZ 50MG [Concomitant]
     Dosage: 50 MG, 1-0-1-0, KAPSELN
  15. L-THYROX HEXAL 88 [Concomitant]
     Dosage: 0.088 MG
  16. ATORVASTATIN [Concomitant]
     Active Substance: ATORVASTATIN
     Dosage: 40 MG, 0-0-1-0
  17. ISOPTIN KHK RETARD 120MG [Concomitant]
     Dosage: 120 MG, 1-1-1-0, PROLONGED-RELEASE TABLETS
  18. TILIDIN 100/8 [Concomitant]
     Dosage: 8|100 MG, 1-1-1-0
  19. PANTOPRAZOL [Concomitant]
     Active Substance: PANTOPRAZOLE SODIUM
     Dosage: 40 MG, 1-0-0-0
  20. DEKRISTOL 20000 I.E. [Concomitant]
     Active Substance: CHOLECALCIFEROL
     Dosage: 20000 IU / WEEK, 1X, CAPSULES

REACTIONS (1)
  - Haematochezia [Recovered/Resolved]

NARRATIVE: CASE EVENT DATE: 20191010
